FAERS Safety Report 10866504 (Version 1)
Quarter: 2015Q1

REPORT INFORMATION
  Report Type: Spontaneous
  Country: US (occurrence: None)
  Receive Date: 20150220
  Receipt Date: 20150220
  Transmission Date: 20150721
  Serious: No
  Sender: FDA-Public Use
  Company Number: None

PATIENT
  Age: 77 Year
  Sex: Male
  Weight: 97.7 kg

DRUGS (3)
  1. PS-341 [Suspect]
     Active Substance: BORTEZOMIB
     Dates: end: 20140213
  2. DEXAMETHASONE. [Suspect]
     Active Substance: DEXAMETHASONE
     Dates: end: 20150212
  3. LENALIDOMIDE (CC-5013) [Suspect]
     Active Substance: LENALIDOMIDE
     Dates: end: 20140212

REACTIONS (5)
  - Unresponsive to stimuli [None]
  - Cardio-respiratory arrest [None]
  - Vomiting [None]
  - Venous thrombosis [None]
  - Aspiration [None]

NARRATIVE: CASE EVENT DATE: 20150213
